FAERS Safety Report 5254656-4 (Version None)
Quarter: 2007Q1

REPORT INFORMATION
  Report Type: 
  Country: None (occurrence: None)
  Receive Date: 20070302
  Receipt Date: 20070228
  Transmission Date: 20070707
  Serious: Yes (Disabling)
  Sender: FDA-Public Use
  Company Number: BR-ALLERGAN-0702069US

PATIENT
  Age: 51 Year
  Sex: Female

DRUGS (1)
  1. ATROPINA 1% [Suspect]
     Indication: DRUG USE FOR UNKNOWN INDICATION
     Dosage: 1 GTT, SINGLE
     Route: 047
     Dates: start: 20070227, end: 20070227

REACTIONS (3)
  - BLINDNESS TRANSIENT [None]
  - EYE IRRITATION [None]
  - EYE PAIN [None]
